FAERS Safety Report 20655227 (Version 3)
Quarter: 2022Q2

REPORT INFORMATION
  Report Type: Spontaneous
  Country: US (occurrence: US)
  Receive Date: 20220330
  Receipt Date: 20220630
  Transmission Date: 20220721
  Serious: No
  Sender: FDA-Public Use
  Company Number: US-KYOWAKIRIN-2022BKK004395

PATIENT

DRUGS (1)
  1. CRYSVITA [Suspect]
     Active Substance: BUROSUMAB-TWZA
     Indication: Hereditary hypophosphataemic rickets
     Dosage: 70 MG, EVERY FOUR WEEKS
     Route: 058
     Dates: start: 20220312

REACTIONS (4)
  - Vertigo [Not Recovered/Not Resolved]
  - Myalgia [Unknown]
  - Restless legs syndrome [Unknown]
  - Calcinosis [Unknown]

NARRATIVE: CASE EVENT DATE: 20220301
